FAERS Safety Report 5587264-6 (Version None)
Quarter: 2008Q1

REPORT INFORMATION
  Report Type: 
  Country: None (occurrence: None)
  Receive Date: 20080110
  Receipt Date: 20080103
  Transmission Date: 20080703
  Serious: Yes (Hospitalization, Other)
  Sender: FDA-Public Use
  Company Number: US-ELI_LILLY_AND_COMPANY-US200801000422

PATIENT
  Sex: Female

DRUGS (8)
  1. HUMULIN N [Suspect]
     Dates: end: 20070101
  2. HUMULIN N [Suspect]
     Dates: end: 20070101
  3. LANTUS [Concomitant]
     Dates: start: 20070101
  4. LISINOPRIL [Concomitant]
     Dosage: 40 MG, UNK
  5. MAXZIDE [Concomitant]
     Dosage: 25 MG, 2/D
  6. NORVASC [Concomitant]
     Dosage: 5 MG, 2/D
  7. EXOFUR [Concomitant]
     Dosage: UNK, DAILY (1/D)
  8. CLONIDINE [Concomitant]
     Dosage: UNK, AS NEEDED

REACTIONS (4)
  - CEREBROVASCULAR ACCIDENT [None]
  - DYSARTHRIA [None]
  - PAIN IN EXTREMITY [None]
  - VISION BLURRED [None]
